FAERS Safety Report 19427675 (Version 1)
Quarter: 2021Q2

REPORT INFORMATION
  Report Type: Spontaneous
  Country: US (occurrence: US)
  Receive Date: 20210616
  Receipt Date: 20210616
  Transmission Date: 20210717
  Serious: Yes (Death)
  Sender: FDA-Public Use
  Company Number: None

PATIENT
  Sex: Male
  Weight: 62.1 kg

DRUGS (3)
  1. CAPECITABINE 750MG  BID DAYS 1?14 OF 28 DAYS [Concomitant]
  2. TEMOZOLOMIDE. [Suspect]
     Active Substance: TEMOZOLOMIDE
     Indication: PANCREATIC CARCINOMA
     Dosage: ?          OTHER FREQUENCY:QD.DAYS10?14/28DAY;?
     Route: 048
     Dates: start: 20210518
  3. TEMOZOLOMIDE. [Suspect]
     Active Substance: TEMOZOLOMIDE
     Indication: PANCREATIC CARCINOMA
     Dosage: ?          OTHER FREQUENCY:QD.DAYS10?14/28DAY;?
     Route: 048
     Dates: start: 20210518

REACTIONS (1)
  - Death [None]
